FAERS Safety Report 12242627 (Version 1)
Quarter: 2016Q2

REPORT INFORMATION
  Report Type: Spontaneous
  Country: US (occurrence: US)
  Receive Date: 20160406
  Receipt Date: 20160406
  Transmission Date: 20160815
  Serious: No
  Sender: FDA-Public Use
  Company Number: US-ELI_LILLY_AND_COMPANY-US201603007656

PATIENT
  Age: 63 Year
  Sex: Female

DRUGS (3)
  1. ERBITUX [Suspect]
     Active Substance: CETUXIMAB
     Indication: COLORECTAL CANCER RECURRENT
     Dosage: UNK, WEEKLY (1/W)
     Route: 065
     Dates: start: 20160309
  2. CYTOMEL [Concomitant]
     Active Substance: LIOTHYRONINE SODIUM
     Indication: HYPOTHYROIDISM
     Dosage: UNK, UNKNOWN
     Route: 065
  3. SYNTHROID [Concomitant]
     Active Substance: LEVOTHYROXINE SODIUM
     Indication: HYPOTHYROIDISM
     Dosage: UNK, UNKNOWN
     Route: 065

REACTIONS (1)
  - Dermatitis acneiform [Not Recovered/Not Resolved]

NARRATIVE: CASE EVENT DATE: 20160316
